FAERS Safety Report 5100544-3 (Version None)
Quarter: 2006Q3

REPORT INFORMATION
  Report Type: 
  Country: None (occurrence: None)
  Receive Date: 20060909
  Receipt Date: 20060831
  Transmission Date: 20061208
  Serious: Yes (Other)
  Sender: FDA-Public Use
  Company Number: US-ABBOTT-06P-163-0343373-00

PATIENT
  Sex: Female
  Weight: 19.522 kg

DRUGS (4)
  1. OMNICEF [Suspect]
     Indication: EAR INFECTION
     Route: 048
     Dates: start: 20060822, end: 20060830
  2. TOPIRAMATE [Concomitant]
     Indication: CONVULSION PROPHYLAXIS
     Route: 048
     Dates: start: 20030101
  3. TRILEPTOL [Concomitant]
     Indication: CONVULSION PROPHYLAXIS
     Route: 048
     Dates: start: 20030101
  4. CLORAZEPATE DIPOTASSIUM [Concomitant]
     Indication: CONVULSION PROPHYLAXIS
     Dates: start: 20050701

REACTIONS (2)
  - DROP ATTACKS [None]
  - GRAND MAL CONVULSION [None]
